FAERS Safety Report 4514673-6 (Version None)
Quarter: 2004Q4

REPORT INFORMATION
  Report Type: 
  Country: None (occurrence: None)
  Receive Date: 20041126
  Receipt Date: 20041116
  Transmission Date: 20050328
  Serious: Yes (Other)
  Sender: FDA-Public Use
  Company Number: HQWYE638223NOV04

PATIENT
  Age: 53 Year
  Sex: Male

DRUGS (2)
  1. EFFEXOR XR [Suspect]
     Dosage: ORAL
     Route: 048
  2. BENZODIAZEPINE (BENZODIAZEPINE) [Concomitant]

REACTIONS (3)
  - HYPOTHERMIA [None]
  - PANCREATITIS ACUTE [None]
  - RESTLESSNESS [None]
